FAERS Safety Report 6714456-2 (Version None)
Quarter: 2010Q2

REPORT INFORMATION
  Report Type: 
  Country: None (occurrence: None)
  Receive Date: 20100506
  Receipt Date: 20100430
  Transmission Date: 20101027
  Serious: Yes (Hospitalization)
  Sender: FDA-Public Use
  Company Number: JP-MERCK-1004USA04386

PATIENT
  Age: 86 Year
  Sex: Female
  Weight: 50 kg

DRUGS (8)
  1. JANUVIA [Suspect]
     Indication: DIABETES MELLITUS
     Route: 048
     Dates: start: 20100409, end: 20100413
  2. AMARYL [Suspect]
     Indication: DIABETES MELLITUS
     Route: 048
     Dates: start: 20070801, end: 20100413
  3. RAMITALATE [Concomitant]
     Indication: HYPERTENSION
     Route: 048
     Dates: start: 20070801, end: 20100413
  4. DAITALIC [Concomitant]
     Indication: HYPERTENSION
     Route: 048
     Dates: start: 20070801, end: 20100413
  5. MEVAN [Concomitant]
     Indication: HYPERLIPIDAEMIA
     Route: 048
     Dates: start: 20070801, end: 20100413
  6. BASEN [Concomitant]
     Indication: DIABETES MELLITUS
     Route: 048
     Dates: start: 20100402, end: 20100408
  7. CEPHADOL [Concomitant]
     Indication: DIZZINESS
     Route: 048
     Dates: start: 20070801, end: 20100413
  8. EPHEDRA [Concomitant]
     Indication: COUGH
     Route: 048
     Dates: start: 20070801, end: 20100413

REACTIONS (2)
  - ALTERED STATE OF CONSCIOUSNESS [None]
  - HYPOGLYCAEMIA [None]
